FAERS Safety Report 19423224 (Version 1)
Quarter: 2021Q2

REPORT INFORMATION
  Report Type: Spontaneous
  Country: US (occurrence: US)
  Receive Date: 20210616
  Receipt Date: 20210616
  Transmission Date: 20210717
  Serious: No
  Sender: FDA-Public Use
  Company Number: US-ASTRAZENECA-2021A460810

PATIENT
  Age: 20863 Day
  Sex: Female
  Weight: 85.3 kg

DRUGS (11)
  1. TELMISARTAN+HYDROCHLOROTHIAZIDE [Concomitant]
     Indication: BLOOD PRESSURE ABNORMAL
     Route: 048
  2. MELOXICAM TAB [Concomitant]
  3. FLUPHENAZINE TAB [Concomitant]
     Route: 048
  4. ATORVASTATIN TAB [Concomitant]
     Active Substance: ATORVASTATIN
     Route: 048
  5. FAMOTIDINE. [Concomitant]
     Active Substance: FAMOTIDINE
     Indication: GASTROOESOPHAGEAL REFLUX DISEASE
  6. AMLODIPINE TAB [Concomitant]
     Route: 048
  7. CLONIDINE TAB [Concomitant]
  8. ESCITALOPRAM TAB [Concomitant]
     Route: 048
  9. XIGDUO XR [Suspect]
     Active Substance: DAPAGLIFLOZIN PROPANEDIOL\METFORMIN HYDROCHLORIDE
     Indication: DIABETES MELLITUS
     Route: 048
     Dates: start: 20210303
  10. METOPROLOL SUCC ER TAB [Concomitant]
     Route: 048
  11. MULTIVITAMINS [Concomitant]
     Active Substance: VITAMINS
     Dosage: PATIENT TAKES SILVER CENTRUM MULTIVITAMINS DAILY, ALONG WITH VITAMINS D, C, AND B.

REACTIONS (1)
  - Anogenital warts [Not Recovered/Not Resolved]

NARRATIVE: CASE EVENT DATE: 20210306
